FAERS Safety Report 25242039 (Version 1)
Quarter: 2025Q2

REPORT INFORMATION
  Report Type: Spontaneous
  Country: US (occurrence: US)
  Receive Date: 20250426
  Receipt Date: 20250426
  Transmission Date: 20250717
  Serious: Yes (Other)
  Sender: AUROBINDO
  Company Number: US-MLMSERVICE-20250407-PI473415-00271-1

PATIENT
  Age: 64 Year
  Sex: Male

DRUGS (2)
  1. PREDNISONE [Suspect]
     Active Substance: PREDNISONE
     Indication: VEXAS syndrome
     Dosage: 40 MILLIGRAM, ONCE A DAY (W
     Route: 065
  2. BACTRIM [Concomitant]
     Active Substance: SULFAMETHOXAZOLE\TRIMETHOPRIM
     Indication: VEXAS syndrome
     Dosage: 3 DOSAGE FORM, EVERY WEEK (BACTRIM 800 TO 160 MG TABLET 3 DAYS A WEEK)
     Route: 065

REACTIONS (1)
  - Hyperglycaemia [Unknown]
